FAERS Safety Report 11467209 (Version 3)
Quarter: 2016Q1

REPORT INFORMATION
  Report Type: Spontaneous
  Country: NO (occurrence: NO)
  Receive Date: 20150908
  Receipt Date: 20160225
  Transmission Date: 20160525
  Serious: Yes (Death, Life-Threatening, Other)
  Sender: FDA-Public Use
  Company Number: NO-ACCORD-024062

PATIENT
  Age: 46 Year
  Sex: Male

DRUGS (11)
  1. PREDNISOLONE TAKEDA [Suspect]
     Active Substance: PREDNISOLONE
     Indication: PRECURSOR T-LYMPHOBLASTIC LYMPHOMA/LEUKAEMIA
     Dosage: DAY 1-29, TAPER TO DAY 35?THE INTENSIFIED HAMMERSMITH REGIMEN (EARLY CONSOLIDATION-PHASE)
     Route: 048
  2. TIOGUANINE [Suspect]
     Active Substance: THIOGUANINE ANHYDROUS
     Indication: PRECURSOR T-LYMPHOBLASTIC LYMPHOMA/LEUKAEMIA
     Dosage: ON DAYS 43-47?THE INTENSIFIED HAMMERSMITH REGIMEN (EARLY CONSOLIDATION-PHASE)
     Route: 042
  3. METHOTREXATE [Suspect]
     Active Substance: METHOTREXATE
     Indication: PRECURSOR T-LYMPHOBLASTIC LYMPHOMA/LEUKAEMIA
     Dosage: ON DAYS 64 AND 78??THE INTENSIFIED HAMMERSMITH REGIMEN (EARLY CONSOLIDATION-PHASE)
     Route: 042
  4. DOXORUBICIN [Suspect]
     Active Substance: DOXORUBICIN
     Indication: PRECURSOR T-LYMPHOBLASTIC LYMPHOMA/LEUKAEMIA
     Dosage: THE INTENSIFIED HAMMERSMITH REGIMEN (EARLY CONSOLIDATION-PHASE AS WELL AS INDUCTION)
     Route: 042
  5. VINCRISTINE [Suspect]
     Active Substance: VINCRISTINE
     Indication: PRECURSOR T-LYMPHOBLASTIC LYMPHOMA/LEUKAEMIA
     Dosage: MAX 2.0 MG ON AN UNKNOWN DATE BETWEEN 1999 AND 2011?THE INTENSIFIED HAMMERSMITH REGIMEN (INDUCTION)
     Route: 042
  6. CYTARABINE. [Suspect]
     Active Substance: CYTARABINE
     Indication: PRECURSOR T-LYMPHOBLASTIC LYMPHOMA/LEUKAEMIA
     Dosage: 200 MG/M2 (DAYS 43-47)?THE INTENSIFIED HAMMERSMITH REGIMEN (EARLY CONSOLIDATION-PHASE)
     Route: 042
  7. MERCAPTOPURINE/MERCAPTOPURINE ANHYDROUS [Suspect]
     Active Substance: MERCAPTOPURINE
     Indication: PRECURSOR T-LYMPHOBLASTIC LYMPHOMA/LEUKAEMIA
     Dosage: ON DAYS 64-111 (INDUCTION PHASE)
     Route: 048
  8. GRAN [Suspect]
     Active Substance: FILGRASTIM
     Indication: PERIPHERAL BLOOD STEM CELL APHERESIS
     Dosage: GRAN (FILGRASTIM)?10 MCG/KG/DAY?THE INTENSIFIED HAMMERSMITH REGIMEN (EARLY CONSOLIDATION-PHASE)
  9. DAUNORUBICIN [Suspect]
     Active Substance: DAUNORUBICIN
     Indication: PRECURSOR T-LYMPHOBLASTIC LYMPHOMA/LEUKAEMIA
     Dosage: THE INTENSIFIED HAMMERSMITH REGIMEN (EARLY CONSOLIDATION-PHASE)
     Route: 042
  10. CYCLOPHOSPHAMIDE/CYCLOPHOSPHAMIDE        MONOHYDRATE [Suspect]
     Active Substance: CYCLOPHOSPHAMIDE
     Indication: PRECURSOR T-LYMPHOBLASTIC LYMPHOMA/LEUKAEMIA
     Dosage: ON DAYS 15, 22, AND 29?THE INTENSIFIED HAMMERSMITH REGIMEN (EARLY CONSOLIDATION-PHASE)
     Route: 042
  11. ASPARAGINASE [Suspect]
     Active Substance: ASPARAGINASE
     Indication: PRECURSOR T-LYMPHOBLASTIC LYMPHOMA/LEUKAEMIA
     Dosage: ON DAYS 8-21 (INDUCTION PHASE)??THE INTENSIFIED HAMMERSMITH REGIMEN (EARLY CONSOLIDATION-PHASE)
     Route: 042

REACTIONS (4)
  - Venoocclusive disease [Fatal]
  - Multiple organ dysfunction syndrome [Fatal]
  - Haematotoxicity [Unknown]
  - Febrile neutropenia [Unknown]
